FAERS Safety Report 24929246 (Version 1)
Quarter: 2025Q1

REPORT INFORMATION
  Report Type: Spontaneous
  Country: US (occurrence: US)
  Receive Date: 20250205
  Receipt Date: 20250205
  Transmission Date: 20250408
  Serious: Yes (Hospitalization, Other)
  Sender: JOHNSON AND JOHNSON
  Company Number: US-JNJFOC-20250192259

PATIENT
  Sex: Female

DRUGS (7)
  1. REMICADE [Suspect]
     Active Substance: INFLIXIMAB
     Indication: Crohn^s disease
     Route: 041
  2. REMICADE [Suspect]
     Active Substance: INFLIXIMAB
     Route: 041
  3. TRULICITY [Concomitant]
     Active Substance: DULAGLUTIDE
  4. ALTACE [Concomitant]
     Active Substance: RAMIPRIL
  5. GLYBURIDE [Concomitant]
     Active Substance: GLYBURIDE
  6. SYNTHROID [Concomitant]
     Active Substance: LEVOTHYROXINE SODIUM
  7. ITRACONAZOLE [Concomitant]
     Active Substance: ITRACONAZOLE

REACTIONS (4)
  - Pneumonia fungal [Unknown]
  - Crohn^s disease [Recovering/Resolving]
  - Drug level decreased [Unknown]
  - Off label use [Unknown]

NARRATIVE: CASE EVENT DATE: 20241201
